FAERS Safety Report 23442473 (Version 1)
Quarter: 2024Q1

REPORT INFORMATION
  Report Type: Spontaneous
  Country: US (occurrence: None)
  Receive Date: 20240124
  Receipt Date: 20240124
  Transmission Date: 20240410
  Serious: No
  Sender: FDA-Public Use
  Company Number: None

PATIENT
  Age: 34 Year
  Sex: Female

DRUGS (1)
  1. HUMIRA [Suspect]
     Active Substance: ADALIMUMAB
     Indication: Spinal osteoarthritis
     Dosage: FREQUENCY : EVERY OTHER WEEK;?
     Route: 058
     Dates: start: 20240110, end: 20240117

REACTIONS (6)
  - Fatigue [None]
  - Nausea [None]
  - Headache [None]
  - Injection site reaction [None]
  - Urticaria [None]
  - Injection site bruising [None]

NARRATIVE: CASE EVENT DATE: 20240110
